FAERS Safety Report 17122014 (Version 1)
Quarter: 2019Q4

REPORT INFORMATION
  Report Type: Report from Study
  Country: US (occurrence: US)
  Receive Date: 20191206
  Receipt Date: 20191206
  Transmission Date: 20200122
  Serious: Yes (Hospitalization)
  Sender: FDA-Public Use
  Company Number: US-EISAI MEDICAL RESEARCH-EC-2019-063610

PATIENT
  Age: 53 Year
  Sex: Female

DRUGS (4)
  1. LENVIMA [Suspect]
     Active Substance: LENVATINIB
     Indication: HEPATOCELLULAR CARCINOMA
     Route: 048
     Dates: start: 201908, end: 201911
  2. LISINOPRIL. [Concomitant]
     Active Substance: LISINOPRIL
  3. LENVIMA [Suspect]
     Active Substance: LENVATINIB
     Route: 048
     Dates: start: 201911, end: 201911
  4. AMLODIPINE BESYLATE. [Concomitant]
     Active Substance: AMLODIPINE BESYLATE

REACTIONS (16)
  - Nausea [Recovered/Resolved]
  - Asthenia [Unknown]
  - Pain [Recovering/Resolving]
  - Feeling hot [Recovering/Resolving]
  - Headache [Unknown]
  - Hyperkeratosis [Unknown]
  - Gait disturbance [Recovering/Resolving]
  - Decreased appetite [Recovering/Resolving]
  - Gastritis [Unknown]
  - Malaise [Unknown]
  - Vomiting [Recovered/Resolved]
  - Hypertension [Unknown]
  - Fatigue [Unknown]
  - Pain in extremity [Recovering/Resolving]
  - Insomnia [Recovering/Resolving]
  - Nasopharyngitis [Unknown]

NARRATIVE: CASE EVENT DATE: 2019
